FAERS Safety Report 4700821-1 (Version None)
Quarter: 2005Q2

REPORT INFORMATION
  Report Type: 
  Country: None (occurrence: None)
  Receive Date: 20050627
  Receipt Date: 20050627
  Transmission Date: 20051028
  Serious: Yes (Death)
  Sender: FDA-Public Use
  Company Number: None

PATIENT
  Age: 67 Year
  Sex: Female
  Weight: 59 kg

DRUGS (17)
  1. VELCADE [Suspect]
     Indication: MULTIPLE MYELOMA
     Dosage: 1.6 MG/M2 INJECTION
     Dates: start: 20050218, end: 20050326
  2. THALIDOMIDE [Suspect]
     Indication: MULTIPLE MYELOMA
     Dosage: 100 MG PO QHS
     Route: 048
     Dates: start: 20050218, end: 20050426
  3. LEVOTHYROXINE [Concomitant]
  4. OXYCONTIN [Concomitant]
  5. OXYCODONE HCL [Concomitant]
  6. ACYCLOVIR [Concomitant]
  7. LEVEFLOXACIN [Concomitant]
  8. FLUCONAZOLE [Concomitant]
  9. LASIX [Concomitant]
  10. OS-CAL [Concomitant]
  11. MULTIVITAMIN [Concomitant]
  12. DILTIAZEM [Concomitant]
  13. POTASSIUM CHLORIDE [Concomitant]
  14. NEUTRA-PHOS [Concomitant]
  15. REGLAN [Concomitant]
  16. PHENERGAN [Concomitant]
  17. SENNA [Concomitant]

REACTIONS (10)
  - DIFFICULT TO WEAN FROM VENTILATOR [None]
  - HYPERTENSION [None]
  - HYPOXIA [None]
  - LABORATORY TEST ABNORMAL [None]
  - MALIGNANT NEOPLASM PROGRESSION [None]
  - MULTI-ORGAN FAILURE [None]
  - MULTIPLE MYELOMA [None]
  - PLEURAL EFFUSION [None]
  - RENAL FAILURE [None]
  - THROMBOCYTOPENIA [None]
